FAERS Safety Report 5347054-6 (Version None)
Quarter: 2007Q2

REPORT INFORMATION
  Report Type: 
  Country: None (occurrence: None)
  Receive Date: 20070604
  Receipt Date: 20070521
  Transmission Date: 20071010
  Serious: Yes (Other)
  Sender: FDA-Public Use
  Company Number: B0472265A

PATIENT
  Age: 35 Year
  Sex: Female

DRUGS (9)
  1. LAMOTRIGINE [Suspect]
  2. OXCARBAZEPINE [Suspect]
  3. TOPIRAMATE [Concomitant]
  4. ARIPIPRAZOLE [Concomitant]
  5. CITALOPRAM HYDROBROMIDE [Concomitant]
  6. NAPROXEN [Concomitant]
  7. PANTOPRAZOLE SODIUM [Concomitant]
  8. LEVOTHYROXINE SODIUM [Concomitant]
  9. HYDROXYZINE HYDROCHLORIDE [Concomitant]

REACTIONS (6)
  - APHTHOUS STOMATITIS [None]
  - DRUG TOXICITY [None]
  - GLOSSODYNIA [None]
  - ORAL INTAKE REDUCED [None]
  - PHARYNGOLARYNGEAL PAIN [None]
  - TONGUE ULCERATION [None]
